FAERS Safety Report 11321577 (Version 3)
Quarter: 2016Q3

REPORT INFORMATION
  Report Type: Spontaneous
  Country: US (occurrence: US)
  Receive Date: 20150729
  Receipt Date: 20160921
  Transmission Date: 20161109
  Serious: No
  Sender: FDA-Public Use
  Company Number: US-PFIZER INC-2015247116

PATIENT
  Age: 63 Year
  Sex: Female

DRUGS (1)
  1. LYRICA [Suspect]
     Active Substance: PREGABALIN
     Indication: FIBROMYALGIA
     Dosage: 300 MG, 2X/DAY FOR SIX YEARS

REACTIONS (3)
  - Withdrawal syndrome [Recovered/Resolved]
  - Pain [Not Recovered/Not Resolved]
  - Overdose [Unknown]
